FAERS Safety Report 14949650 (Version 1)
Quarter: 2018Q2

REPORT INFORMATION
  Report Type: Spontaneous
  Country: SE (occurrence: SE)
  Receive Date: 20180529
  Receipt Date: 20180529
  Transmission Date: 20180711
  Serious: Yes (Hospitalization)
  Sender: FDA-Public Use
  Company Number: SE-BAUSCH-BL-2018-014780

PATIENT
  Age: 81 Year
  Sex: Male
  Weight: 65 kg

DRUGS (5)
  1. FLUCONAZOLE. [Concomitant]
     Active Substance: FLUCONAZOLE
     Indication: FUNGAL INFECTION
     Dosage: 200 MILLIGRAM
     Route: 065
     Dates: start: 20160406
  2. REVLIMID [Suspect]
     Active Substance: LENALIDOMIDE
     Indication: PLASMA CELL MYELOMA
     Dosage: 525 MILLIGRAM IN 28 DAYS (25 MILLIGRAM)
     Route: 048
     Dates: start: 20160218
  3. DEXAMETHASONE. [Suspect]
     Active Substance: DEXAMETHASONE
     Indication: PLASMA CELL MYELOMA
     Dosage: 20 MILLIGRAM IN ONE WEEK
     Route: 048
     Dates: start: 20160218
  4. WARFARIN SODIUM. [Concomitant]
     Active Substance: WARFARIN SODIUM
     Indication: ATRIAL FIBRILLATION
     Route: 065
  5. FRAGMIN [Concomitant]
     Active Substance: DALTEPARIN SODIUM
     Indication: ATRIAL FIBRILLATION
     Dosage: UNKNOWN DOSE (1) FOR ONE DAY
     Route: 058
     Dates: start: 20160404

REACTIONS (2)
  - Neutropenia [Recovered/Resolved]
  - Febrile neutropenia [Recovered/Resolved]

NARRATIVE: CASE EVENT DATE: 20160408
